FAERS Safety Report 4901983-3 (Version None)
Quarter: 2006Q1

REPORT INFORMATION
  Report Type: 
  Country: None (occurrence: None)
  Receive Date: 20060203
  Receipt Date: 20060203
  Transmission Date: 20060701
  Serious: No
  Sender: FDA-Public Use
  Company Number: None

PATIENT
  Age: 7 Month
  Sex: Male

DRUGS (3)
  1. SYNAGIS [Suspect]
     Indication: IMMUNISATION
     Dosage: IM 1 DOSE
     Route: 030
     Dates: start: 20060109
  2. SYNAGIS [Suspect]
  3. GASTROCROM [Concomitant]

REACTIONS (2)
  - ERYTHEMA MULTIFORME [None]
  - SKIN LESION [None]
